FAERS Safety Report 15994099 (Version 1)
Quarter: 2019Q1

REPORT INFORMATION
  Report Type: Report from Study
  Country: US (occurrence: US)
  Receive Date: 20190222
  Receipt Date: 20190222
  Transmission Date: 20190418
  Serious: Yes (Hospitalization, Other)
  Sender: FDA-Public Use
  Company Number: US-ROCHE-1686847

PATIENT
  Age: 59 Year
  Sex: Male
  Weight: 117 kg

DRUGS (8)
  1. ATENOLOL. [Concomitant]
     Active Substance: ATENOLOL
     Indication: HYPERTENSION
     Route: 065
  2. VEMURAFENIB. [Suspect]
     Active Substance: VEMURAFENIB
     Indication: THYROID CANCER
     Dosage: ON 16/DEC/2015, RECEIVED LAST DOSE
     Route: 048
     Dates: start: 20151023, end: 20151216
  3. METOPROLOL TARTRATE. [Concomitant]
     Active Substance: METOPROLOL TARTRATE
     Dosage: 25MG PER TUBE
     Route: 065
     Dates: start: 20151222
  4. LEVOTHYROXINE. [Concomitant]
     Active Substance: LEVOTHYROXINE
     Route: 065
  5. ONDANSETRON [Concomitant]
     Active Substance: ONDANSETRON
     Route: 042
  6. PROMETHAZINE [Concomitant]
     Active Substance: PROMETHAZINE\PROMETHAZINE HYDROCHLORIDE
     Route: 042
  7. LOVENOX [Concomitant]
     Active Substance: ENOXAPARIN SODIUM
     Dosage: 120MG/0.8ML
     Route: 065
     Dates: start: 20151223
  8. NISTATIN [Concomitant]
     Active Substance: NYSTATIN
     Route: 065
     Dates: start: 20151222

REACTIONS (5)
  - Atrial fibrillation [Recovered/Resolved]
  - Haemoglobin decreased [Not Recovered/Not Resolved]
  - Chest wall haematoma [Not Recovered/Not Resolved]
  - Pulmonary embolism [Not Recovered/Not Resolved]
  - Anaemia [Recovered/Resolved]

NARRATIVE: CASE EVENT DATE: 20151219
